FAERS Safety Report 24984833 (Version 2)
Quarter: 2025Q3

REPORT INFORMATION
  Report Type: Report from Study
  Country: US (occurrence: US)
  Receive Date: 20250219
  Receipt Date: 20250802
  Transmission Date: 20251021
  Serious: Yes (Other)
  Sender: ALEXION PHARMACEUTICALS
  Company Number: US-AstraZeneca-CH-00806676A

PATIENT
  Sex: Female
  Weight: 67.596 kg

DRUGS (1)
  1. OLAPARIB [Suspect]
     Active Substance: OLAPARIB
     Indication: Uterine cancer
     Dosage: 300 MILLIGRAM, BID
     Dates: start: 202412

REACTIONS (3)
  - Pleural effusion [Unknown]
  - Fatigue [Unknown]
  - Hot flush [Unknown]
